FAERS Safety Report 8334531-9 (Version None)
Quarter: 2012Q2

REPORT INFORMATION
  Report Type: 
  Country: None (occurrence: None)
  Receive Date: 20120503
  Receipt Date: 20120430
  Transmission Date: 20120825
  Serious: Yes (Hospitalization)
  Sender: FDA-Public Use
  Company Number: ES-JNJFOC-20120208808

PATIENT
  Sex: Male
  Weight: 97.4 kg

DRUGS (6)
  1. PALIPERIDONE [Suspect]
     Route: 030
     Dates: start: 20111004
  2. OLANZAPINE [Concomitant]
     Indication: SCHIZOPHRENIA
     Dates: start: 20110915
  3. DICLOFENAC [Concomitant]
     Indication: INJECTION SITE PAIN
     Dates: start: 20110911
  4. DICLOFENAC [Concomitant]
     Dates: start: 20111010
  5. DICLOFENAC [Concomitant]
     Dates: start: 20110912
  6. PALIPERIDONE [Suspect]
     Indication: SCHIZOPHRENIA
     Route: 030
     Dates: start: 20120206

REACTIONS (1)
  - PSYCHOTIC DISORDER [None]
